FAERS Safety Report 9417225 (Version 1)
Quarter: 2013Q3

REPORT INFORMATION
  Report Type: Spontaneous
  Country: NZ (occurrence: NZ)
  Receive Date: 20130724
  Receipt Date: 20130724
  Transmission Date: 20140515
  Serious: Yes (Other)
  Sender: FDA-Public Use
  Company Number: NZ-ELI_LILLY_AND_COMPANY-NZ201307004957

PATIENT
  Age: 25 Year
  Sex: Male

DRUGS (2)
  1. ZYPREXA RELPREVV [Suspect]
     Indication: BIPOLAR DISORDER
     Dosage: 300 MG, MONTHLY (1/M)
  2. ZYPREXA RELPREVV [Suspect]
     Dosage: 1 DF, 2/M

REACTIONS (1)
  - Hypersomnia [Unknown]
